FAERS Safety Report 10850252 (Version 1)
Quarter: 2015Q1

REPORT INFORMATION
  Report Type: Spontaneous
  Country: US (occurrence: US)
  Receive Date: 20150221
  Receipt Date: 20150221
  Transmission Date: 20150721
  Serious: No
  Sender: FDA-Public Use
  Company Number: US-NOVEN-15US013424

PATIENT
  Sex: Female

DRUGS (3)
  1. MINIVELLE [Suspect]
     Active Substance: ESTRADIOL
     Dosage: .075 MG, QD
     Route: 062
  2. MINIVELLE [Suspect]
     Active Substance: ESTRADIOL
     Indication: PRODUCT USED FOR UNKNOWN INDICATION
     Dosage: UNK
     Route: 062
  3. MINIVELLE [Suspect]
     Active Substance: ESTRADIOL
     Dosage: 0.05 MG, QD
     Route: 062

REACTIONS (10)
  - Anxiety [Not Recovered/Not Resolved]
  - Feeling abnormal [Unknown]
  - Migraine [Unknown]
  - Panic attack [Unknown]
  - Arthralgia [Unknown]
  - Female sex hormone level abnormal [Unknown]
  - Treatment noncompliance [Recovered/Resolved]
  - Crying [Unknown]
  - Wrong technique in drug usage process [Not Recovered/Not Resolved]
  - Malaise [Unknown]

NARRATIVE: CASE EVENT DATE: 201309
